FAERS Safety Report 22345548 (Version 1)
Quarter: 2023Q2

REPORT INFORMATION
  Report Type: Spontaneous
  Country: TW (occurrence: TW)
  Receive Date: 20230519
  Receipt Date: 20230519
  Transmission Date: 20230721
  Serious: Yes (Hospitalization, Other)
  Sender: FDA-Public Use
  Company Number: TW-DSJP-DSJ-2023-119072

PATIENT
  Age: 75 Year
  Sex: Female
  Weight: 36.1 kg

DRUGS (3)
  1. EDOXABAN [Suspect]
     Active Substance: EDOXABAN
     Indication: Deep vein thrombosis
     Dosage: 30 MG, QD
     Route: 048
  2. EDOXABAN [Suspect]
     Active Substance: EDOXABAN
     Indication: Cerebrovascular accident
  3. PLAVIX [Suspect]
     Active Substance: CLOPIDOGREL BISULFATE
     Indication: Cerebral arteriosclerosis
     Dosage: UNK
     Route: 065

REACTIONS (5)
  - Subdural haemorrhage [Unknown]
  - Malaise [Unknown]
  - Haemoglobin decreased [Unknown]
  - Depressed level of consciousness [Unknown]
  - Shock [Unknown]
